FAERS Safety Report 9803653 (Version 1)
Quarter: 2014Q1

REPORT INFORMATION
  Report Type: Spontaneous
  Country: US (occurrence: US)
  Receive Date: 20140108
  Receipt Date: 20140108
  Transmission Date: 20141002
  Serious: No
  Sender: FDA-Public Use
  Company Number: US-GLAXOSMITHKLINE-A1019639A

PATIENT
  Age: 48 Year
  Sex: Female

DRUGS (5)
  1. LOVAZA [Suspect]
     Indication: BLOOD TRIGLYCERIDES INCREASED
     Route: 048
  2. ALPRAZOLAM [Concomitant]
  3. METFORMIN [Concomitant]
  4. DEXILANT [Concomitant]
  5. UNKNOWN [Concomitant]

REACTIONS (1)
  - Medication residue present [Unknown]
